FAERS Safety Report 21365896 (Version 5)
Quarter: 2022Q4

REPORT INFORMATION
  Report Type: Report from Study
  Country: DE (occurrence: DE)
  Receive Date: 20220922
  Receipt Date: 20221121
  Transmission Date: 20230112
  Serious: Yes (Other)
  Sender: FDA-Public Use
  Company Number: DE-PFM-2022-04740

PATIENT
  Age: 63 Year
  Sex: Male
  Weight: 90 kg

DRUGS (11)
  1. ENCORAFENIB [Suspect]
     Active Substance: ENCORAFENIB
     Indication: Malignant melanoma
     Dosage: 450 MG/1 X PER DAY
     Route: 048
     Dates: start: 20220430, end: 20221103
  2. BINIMETINIB [Suspect]
     Active Substance: BINIMETINIB
     Indication: Malignant melanoma
     Dosage: 45 MG, BID (2/DAY)
     Route: 048
     Dates: start: 20220430, end: 20221103
  3. PANTOPRAZOLE [Concomitant]
     Active Substance: PANTOPRAZOLE
     Indication: Prophylaxis
     Dosage: UNK
     Route: 065
     Dates: start: 202202
  4. URAPIDIL HYDROCHLORIDE [Concomitant]
     Active Substance: URAPIDIL HYDROCHLORIDE
     Dosage: UNK
     Route: 065
     Dates: start: 20220301, end: 202203
  5. PREDNISOLONE [Concomitant]
     Active Substance: PREDNISOLONE
     Dosage: UNK
     Route: 065
     Dates: start: 20220315, end: 202205
  6. CHOLECALCIFEROL [Concomitant]
     Active Substance: CHOLECALCIFEROL
     Indication: Prophylaxis
     Dosage: UNK
     Route: 065
     Dates: start: 202204
  7. RAMIPRIL [Concomitant]
     Active Substance: RAMIPRIL
     Dosage: UNK
     Route: 065
     Dates: start: 20220315, end: 20220801
  8. XARELTO [Concomitant]
     Active Substance: RIVAROXABAN
     Dosage: UNK
     Route: 065
     Dates: start: 202204
  9. NITROGLYCERIN [Concomitant]
     Active Substance: NITROGLYCERIN
     Dosage: UNK
     Route: 065
     Dates: start: 20220912
  10. URAPIDIL [Concomitant]
     Active Substance: URAPIDIL
     Dosage: UNK
     Route: 065
     Dates: start: 20220912
  11. AMLODIPINE MALEATE [Concomitant]
     Active Substance: AMLODIPINE MALEATE
     Dosage: UNK
     Route: 065
     Dates: start: 20220912

REACTIONS (12)
  - Blood creatine phosphokinase increased [Recovering/Resolving]
  - Hypertension [Not Recovered/Not Resolved]
  - Hypothyroidism [Recovering/Resolving]
  - Blood creatinine increased [Recovered/Resolved]
  - Blood creatinine increased [Recovering/Resolving]
  - Fatigue [Not Recovered/Not Resolved]
  - Alanine aminotransferase increased [Recovering/Resolving]
  - Aspartate aminotransferase increased [Recovering/Resolving]
  - Myoglobin blood increased [Recovering/Resolving]
  - Myalgia [Recovered/Resolved]
  - Platelet count decreased [Recovering/Resolving]
  - Thyroiditis subacute [Recovering/Resolving]

NARRATIVE: CASE EVENT DATE: 20220523
